FAERS Safety Report 17615977 (Version 1)
Quarter: 2020Q2

REPORT INFORMATION
  Report Type: Spontaneous
  Country: GB (occurrence: GB)
  Receive Date: 20200402
  Receipt Date: 20200402
  Transmission Date: 20200713
  Serious: Yes (Hospitalization)
  Sender: FDA-Public Use
  Company Number: GB-TEVA-2020-GB-1215694

PATIENT
  Age: 64 Year
  Sex: Female

DRUGS (10)
  1. BISOPROLOL [Concomitant]
     Active Substance: BISOPROLOL
  2. EZETIMIBE. [Concomitant]
     Active Substance: EZETIMIBE
     Dosage: 10 MG
  3. PREGABALIN. [Concomitant]
     Active Substance: PREGABALIN
     Dosage: 450 MG
  4. ACETYLSALICYLIC ACID [Concomitant]
     Active Substance: ASPIRIN
     Dosage: 75 MG
  5. NITROFURANTOIN. [Suspect]
     Active Substance: NITROFURANTOIN
     Indication: URINARY TRACT INFECTION
     Dosage: 200 MG
     Route: 065
     Dates: start: 20200304, end: 20200305
  6. INCLISIRAN. [Concomitant]
     Active Substance: INCLISIRAN
     Dosage: TRIAL DRUG
  7. OMEPRAZOLE. [Concomitant]
     Active Substance: OMEPRAZOLE
     Dosage: 40 MG
  8. LOSARTAN. [Concomitant]
     Active Substance: LOSARTAN
     Dosage: 100 MG
  9. INDAPAMIDE. [Concomitant]
     Active Substance: INDAPAMIDE
     Dosage: 2.5 MG
  10. MIRTAZAPINE. [Concomitant]
     Active Substance: MIRTAZAPINE
     Dosage: AS NEEDED, 7.5 MG

REACTIONS (7)
  - Hypertension [Recovering/Resolving]
  - Headache [Recovering/Resolving]
  - Neuralgia [Recovering/Resolving]
  - Tremor [Recovering/Resolving]
  - Chest discomfort [Recovering/Resolving]
  - Rhinorrhoea [Recovering/Resolving]
  - Chest pain [Recovering/Resolving]

NARRATIVE: CASE EVENT DATE: 20200304
